FAERS Safety Report 7246520-6 (Version None)
Quarter: 2011Q1

REPORT INFORMATION
  Report Type: 
  Country: None (occurrence: None)
  Receive Date: 20110126
  Receipt Date: 20110118
  Transmission Date: 20110831
  Serious: Yes (Death, Life-Threatening, Hospitalization)
  Sender: FDA-Public Use
  Company Number: FR-ELI_LILLY_AND_COMPANY-FR201011000685

PATIENT
  Sex: Male
  Weight: 64 kg

DRUGS (6)
  1. CISPLATIN [Suspect]
     Indication: NON-SMALL CELL LUNG CANCER
     Dosage: 75 MG/M2, OTHER
     Route: 042
     Dates: start: 20101027
  2. PIPERACILLIN AND TAZOBACTAM [Concomitant]
     Dates: start: 20101024
  3. MORPHINE SULFATE [Concomitant]
     Dates: start: 20101024
  4. GEMCITABINE HYDROCHLORIDE [Suspect]
     Indication: NON-SMALL CELL LUNG CANCER
     Dosage: 1250 MG/M2, OTHER
     Route: 042
     Dates: start: 20101027
  5. METHYLPREDNISOLONE [Concomitant]
     Dates: start: 20101024
  6. KETOPROFEN [Concomitant]
     Dates: start: 20101024

REACTIONS (2)
  - PNEUMONIA [None]
  - ACUTE RESPIRATORY DISTRESS SYNDROME [None]
